FAERS Safety Report 17393336 (Version 1)
Quarter: 2020Q1

REPORT INFORMATION
  Report Type: Report from Study
  Country: US (occurrence: US)
  Receive Date: 20200208
  Receipt Date: 20200208
  Transmission Date: 20200409
  Serious: Yes (Other)
  Sender: FDA-Public Use
  Company Number: US-ROCHE-2505303

PATIENT
  Sex: Male

DRUGS (1)
  1. OCREVUS [Suspect]
     Active Substance: OCRELIZUMAB
     Indication: RELAPSING MULTIPLE SCLEROSIS
     Dosage: DATE OF SERVICE: 04/FEB/2019, 02/AUG/2019.?PREVIOUS DATE OF TREATMENT AS 05/AUG/2019
     Route: 065
     Dates: start: 20180720

REACTIONS (1)
  - Testis cancer [Recovering/Resolving]
